FAERS Safety Report 9891278 (Version 1)
Quarter: 2014Q1

REPORT INFORMATION
  Report Type: Spontaneous
  Country: US (occurrence: None)
  Receive Date: 20140210
  Receipt Date: 20140210
  Transmission Date: 20141002
  Serious: Yes (Hospitalization)
  Sender: FDA-Public Use
  Company Number: GB2014K0281SPO

PATIENT
  Age: 65 Year
  Sex: Female

DRUGS (3)
  1. LANSOPRAZOLE [Suspect]
     Route: 048
     Dates: start: 20131120, end: 20140107
  2. LOPERAMIDE(LOPERAMIDE) [Concomitant]
  3. RAMIPRIL(RAMIPRIL) [Concomitant]

REACTIONS (4)
  - Hypomagnesaemia [None]
  - Nausea [None]
  - Tremor [None]
  - Balance disorder [None]
